FAERS Safety Report 12215633 (Version 1)
Quarter: 2016Q1

REPORT INFORMATION
  Report Type: Other
  Country: US (occurrence: US)
  Receive Date: 20160328
  Receipt Date: 20160328
  Transmission Date: 20160526
  Serious: No
  Sender: FDA-Public Use
  Company Number: US-ALK ABELLO INC-1049852

PATIENT
  Age: 16 Year
  Sex: Female

DRUGS (15)
  1. MUGWORT [Suspect]
     Active Substance: ARTEMISIA VULGARIS POLLEN
     Route: 058
     Dates: start: 20110706, end: 20131023
  2. COMMON SAGEBRUSH [Suspect]
     Active Substance: ARTEMISIA TRIDENTATA POLLEN
     Route: 058
     Dates: start: 20110706, end: 20131023
  3. OAK MIXTURE [Suspect]
     Active Substance: QUERCUS ALBA POLLEN\QUERCUS MACROCARPA POLLEN\QUERCUS MUEHLENBERGII POLLEN\QUERCUS PALUSTRIS POLLEN\QUERCUS RUBRA POLLEN\QUERCUS STELLATA POLLEN\QUERCUS VELUTINA POLLEN\QUERCUS VIRGINIANA POLLEN
     Route: 058
     Dates: start: 20110706, end: 20131023
  4. JOHNSON GRASS [Suspect]
     Active Substance: SORGHUM HALEPENSE POLLEN
     Route: 058
     Dates: start: 20110706, end: 20131023
  5. BERMUDA GRASS, STANDARDIZED [Suspect]
     Active Substance: CYNODON DACTYLON POLLEN
     Indication: RHINITIS ALLERGIC
     Route: 058
     Dates: start: 20110706, end: 20131023
  6. MOUNTAIN CEDAR [Suspect]
     Active Substance: JUNIPERUS ASHEI POLLEN
     Route: 058
     Dates: start: 20110706, end: 20131023
  7. SOUR DOCK SHEEP SORREL POLLEN [Suspect]
     Active Substance: RUMEX ACETOSELLA POLLEN
     Route: 058
     Dates: start: 20110706, end: 20131023
  8. ENGLISH PLANTAIN [Suspect]
     Active Substance: PLANTAGO LANCEOLATA POLLEN
     Route: 058
     Dates: start: 20110706, end: 20131023
  9. RAGWEED [Suspect]
     Active Substance: AMBROSIA ARTEMISIIFOLIA POLLEN\AMBROSIA BIDENTATA POLLEN\AMBROSIA PSILOSTACHYA POLLEN\AMBROSIA TRIFIDA POLLEN
     Route: 058
     Dates: start: 20110706, end: 20131023
  10. ZYRTEC [Concomitant]
     Active Substance: CETIRIZINE HYDROCHLORIDE
     Route: 048
  11. COTTONWOOD [Suspect]
     Active Substance: POPULUS DELTOIDES SUBSP. DELTOIDES POLLEN
     Route: 058
     Dates: start: 20110706, end: 20131023
  12. BURWEED MARSHELDER POLLEN [Suspect]
     Active Substance: CYCLACHAENA XANTHIFOLIA POLLEN
     Route: 058
     Dates: start: 20110706, end: 20131023
  13. STANDARDIZED TIMOTHY GRASS [Suspect]
     Active Substance: PHLEUM PRATENSE POLLEN
     Route: 058
     Dates: start: 20110706, end: 20131023
  14. CEDAR ELM [Suspect]
     Active Substance: ULMUS CRASSIFOLIA POLLEN
     Route: 058
     Dates: start: 20110706, end: 20131023
  15. ALBUTEROL HFA [Concomitant]
     Active Substance: ALBUTEROL SULFATE
     Route: 055

REACTIONS (3)
  - Embolia cutis medicamentosa [Recovered/Resolved with Sequelae]
  - Anaphylactic reaction [Recovered/Resolved]
  - Keloid scar [None]

NARRATIVE: CASE EVENT DATE: 20131023
